FAERS Safety Report 9050967 (Version 2)
Quarter: 2013Q1

REPORT INFORMATION
  Report Type: Spontaneous
  Country: GB (occurrence: GB)
  Receive Date: 20130205
  Receipt Date: 20130321
  Transmission Date: 20140127
  Serious: Yes (Hospitalization, Other)
  Sender: FDA-Public Use
  Company Number: GB-AMGEN-GBRSP2013004961

PATIENT
  Age: 57 Year
  Sex: Male
  Weight: 105.5 kg

DRUGS (9)
  1. MIMPARA [Suspect]
     Indication: HYPERPARATHYROIDISM SECONDARY
     Dosage: 60 MG, QD
     Route: 048
     Dates: start: 20091123
  2. ASPIRIN [Concomitant]
     Indication: CARDIAC DISORDER
     Dosage: 75 MG, QD
     Dates: start: 2002
  3. BISOPROLOL [Concomitant]
     Indication: CARDIAC DISORDER
     Dosage: 5 MG, QD
     Route: 048
     Dates: start: 20070815
  4. ATORVASTATIN [Concomitant]
     Indication: CARDIAC DISORDER
     Dosage: 10 MG, QD
     Route: 048
     Dates: start: 2002
  5. OMEPRAZOLE [Concomitant]
     Indication: DYSPEPSIA
     Dosage: 20 MG, QD
     Route: 048
     Dates: start: 2002
  6. WARFARIN [Concomitant]
     Dosage: UNK UNK, AS NECESSARY
     Route: 048
     Dates: start: 20080818, end: 201205
  7. ALFACALCIDOL [Concomitant]
     Indication: RENAL FAILURE CHRONIC
     Dosage: 0.25 MG, QD
     Route: 048
     Dates: start: 20090707, end: 20120215
  8. ALLOPURINOL [Concomitant]
     Indication: GOUT
     Dosage: 100 MG, BID
     Route: 048
     Dates: start: 2002
  9. CALCIUM ACETATE [Concomitant]
     Dosage: 1 G, BID
     Route: 048
     Dates: start: 20120112, end: 201205

REACTIONS (2)
  - Calciphylaxis [Not Recovered/Not Resolved]
  - Hypercalcaemia [Unknown]
